FAERS Safety Report 6015953-8 (Version None)
Quarter: 2008Q4

REPORT INFORMATION
  Report Type: 
  Country: None (occurrence: None)
  Receive Date: 20081216
  Receipt Date: 20080416
  Transmission Date: 20090506
  Serious: Yes (Other)
  Sender: FDA-Public Use
  Company Number: US-WYE-H03649808

PATIENT
  Age: 47 Year
  Sex: Female

DRUGS (8)
  1. EFFEXOR XR [Suspect]
     Indication: BIPOLAR II DISORDER
     Dosage: 300 MG 1X PER 1 DAY, ORAL
     Route: 048
     Dates: start: 20070901
  2. LAMICTAL [Concomitant]
  3. WELLBUTRIN [Concomitant]
  4. METFORMIN HCL [Concomitant]
  5. LEVOXYL [Concomitant]
  6. GABAPENTIN [Concomitant]
  7. CRESTOR [Concomitant]
  8. ESTRADIOL [Concomitant]

REACTIONS (4)
  - BLOOD SODIUM DECREASED [None]
  - DISORIENTATION [None]
  - HYPERHIDROSIS [None]
  - THIRST [None]
